FAERS Safety Report 18676359 (Version 1)
Quarter: 2020Q4

REPORT INFORMATION
  Report Type: Spontaneous
  Country: ES (occurrence: ES)
  Receive Date: 20201229
  Receipt Date: 20201229
  Transmission Date: 20210114
  Serious: Yes (Other)
  Sender: FDA-Public Use
  Company Number: NVSC2020ES339800

PATIENT
  Age: 1 Year
  Sex: Female

DRUGS (2)
  1. ALPELISIB [Suspect]
     Active Substance: ALPELISIB
     Dosage: 50 MG, QD
     Route: 048
  2. ALPELISIB [Suspect]
     Active Substance: ALPELISIB
     Indication: PIK3CA RELATED OVERGROWTH SPECTRUM
     Dosage: 100 MG, QD
     Route: 048
     Dates: start: 20200617

REACTIONS (3)
  - Diarrhoea [Not Recovered/Not Resolved]
  - Dehydration [Not Recovered/Not Resolved]
  - Product use in unapproved indication [Unknown]

NARRATIVE: CASE EVENT DATE: 20200617
